FAERS Safety Report 5303169-X (Version None)
Quarter: 2007Q2

REPORT INFORMATION
  Report Type: 
  Country: None (occurrence: None)
  Receive Date: 20070420
  Receipt Date: 20070410
  Transmission Date: 20071010
  Serious: Yes (Hospitalization)
  Sender: FDA-Public Use
  Company Number: 2006SE03327

PATIENT
  Age: 27966 Day
  Sex: Male

DRUGS (9)
  1. BLOPRESS TABLETS 4 [Suspect]
     Indication: HYPERTENSION
     Route: 048
     Dates: start: 20060210
  2. BLOPRESS TABLETS 4 [Suspect]
     Route: 048
     Dates: start: 20060510, end: 20060519
  3. PROCYLIN [Suspect]
     Route: 048
     Dates: start: 20060210, end: 20060410
  4. PLETAL [Concomitant]
     Route: 048
     Dates: start: 20060210
  5. OMEPRAL [Concomitant]
     Route: 048
     Dates: start: 20060210
  6. PURSENNID [Concomitant]
     Route: 048
     Dates: start: 20060210
  7. MAGNESIUM OXIDE [Concomitant]
     Route: 048
     Dates: start: 20060210
  8. LOXONIN [Concomitant]
     Route: 048
     Dates: start: 20060210
  9. VASOLAN [Concomitant]
     Route: 048
     Dates: start: 20060210

REACTIONS (1)
  - LARYNGEAL OEDEMA [None]
